FAERS Safety Report 10266597 (Version 4)
Quarter: 2014Q3

REPORT INFORMATION
  Report Type: Spontaneous
  Country: JP (occurrence: JP)
  Receive Date: 20140629
  Receipt Date: 20140908
  Transmission Date: 20150326
  Serious: Yes (Hospitalization)
  Sender: FDA-Public Use
  Company Number: PHHY2014JP047446

PATIENT
  Age: 93 Year
  Sex: Female

DRUGS (2)
  1. EXELON PATCH [Suspect]
     Active Substance: RIVASTIGMINE
     Indication: DEMENTIA ALZHEIMER^S TYPE
     Dosage: 13.5MG DAILY (DAILY DOSE: 6.9 MG/24 HOURS)
     Route: 062
  2. EXELON PATCH [Suspect]
     Active Substance: RIVASTIGMINE
     Dosage: 18 MG DAILY (DAILY DOSE: 9.5 MG/24 HOURS)
     Route: 062
     Dates: start: 201304, end: 20140415

REACTIONS (2)
  - Somnolence [Not Recovered/Not Resolved]
  - Hypercalcaemia [Unknown]

NARRATIVE: CASE EVENT DATE: 20130415
